FAERS Safety Report 9767198 (Version 2)
Quarter: 2013Q4

REPORT INFORMATION
  Report Type: Spontaneous
  Country: NL (occurrence: None)
  Receive Date: 20131213
  Receipt Date: 20131223
  Transmission Date: 20140711
  Serious: Yes (Other)
  Sender: FDA-Public Use
  Company Number: 2013NL0464

PATIENT
  Age: 14 None
  Sex: Female

DRUGS (1)
  1. KINERET [Suspect]
     Indication: JUVENILE IDIOPATHIC ARTHRITIS
     Dosage: 100 MG, 1 IN 1 D
     Route: 058
     Dates: start: 20130415, end: 201311

REACTIONS (1)
  - Hypothyroidism [None]
